FAERS Safety Report 10529097 (Version 2)
Quarter: 2014Q4

REPORT INFORMATION
  Report Type: Spontaneous
  Country: US (occurrence: None)
  Receive Date: 20141003
  Receipt Date: 20141020
  Transmission Date: 20150528
  Serious: Yes (Life-Threatening, Other)
  Sender: FDA-Public Use
  Company Number: 003-239

PATIENT
  Age: 58 Year
  Sex: Female

DRUGS (2)
  1. FLEXERIL [Concomitant]
     Active Substance: CYCLOBENZAPRINE HYDROCHLORIDE
  2. CROFAB [Suspect]
     Active Substance: CROTALIDAE POLYVALENT IMMUNE FAB (OVINE)
     Indication: SNAKE BITE
     Dosage: 2 VIALS
     Dates: start: 20140919

REACTIONS (4)
  - Anaphylactic reaction [None]
  - Platelet count increased [None]
  - Blood sodium decreased [None]
  - White blood cell count increased [None]

NARRATIVE: CASE EVENT DATE: 20140919
